FAERS Safety Report 12135350 (Version 1)
Quarter: 2016Q1

REPORT INFORMATION
  Report Type: Report from Study
  Country: NL (occurrence: NL)
  Receive Date: 20160302
  Receipt Date: 20160302
  Transmission Date: 20160526
  Serious: Yes (Hospitalization, Other)
  Sender: FDA-Public Use
  Company Number: NL-AMGEN-NLDSL2016022897

PATIENT
  Age: 79 Year
  Sex: Male

DRUGS (17)
  1. FENTANYL. [Concomitant]
     Active Substance: FENTANYL
     Dosage: 50 MUG, QD
     Dates: start: 20160218
  2. MACROGOL [Concomitant]
     Active Substance: POLYETHYLENE GLYCOLS
     Dosage: UNK UNK, QD
     Dates: start: 20160211
  3. INSULINE ASPARTATE [Concomitant]
     Dosage: 3 ML, QD
     Dates: start: 20160203
  4. SILODOSINE [Concomitant]
     Active Substance: SILODOSIN
     Dosage: 8 MG, QD
     Dates: start: 20160203
  5. TRAMADOL. [Concomitant]
     Active Substance: TRAMADOL
     Dosage: 50 MG, BID
     Dates: start: 20160203
  6. XGEVA [Suspect]
     Active Substance: DENOSUMAB
     Indication: PRODUCT USED FOR UNKNOWN INDICATION
     Dosage: 120 MG, Q4WK
     Route: 058
  7. OXYCODON [Concomitant]
     Active Substance: OXYCODONE
     Dosage: 10 MG, QD
     Dates: start: 20160211
  8. OMEPRAZOL                          /00661201/ [Concomitant]
     Active Substance: OMEPRAZOLE
     Dosage: 40 MG, QD
     Dates: start: 20160203
  9. PARACETAMOL [Concomitant]
     Active Substance: ACETAMINOPHEN
     Dosage: 500 MG, QD
     Dates: start: 20160219
  10. PREGABALINE [Concomitant]
     Active Substance: PREGABALIN
     Dosage: 75 MG, QD
     Dates: start: 20160212
  11. ONDANSETRON [Concomitant]
     Active Substance: ONDANSETRON
     Dosage: 8 MG, QD
     Dates: start: 20160209
  12. CALCIUM CARBONATE W/COLECALCIFEROL//06535001/ [Concomitant]
     Dosage: 1.25/400, QD
  13. SPIRONOLACTON [Concomitant]
     Active Substance: SPIRONOLACTONE
     Dosage: 50 MG, QD
     Dates: start: 20160203
  14. FLUTICASON [Concomitant]
     Active Substance: FLUTICASONE\FLUTICASONE PROPIONATE
     Dosage: 50 MUG, BID
     Dates: start: 20160203
  15. METFORMINE [Concomitant]
     Active Substance: METFORMIN HYDROCHLORIDE
     Dosage: 500 MG, QD
     Dates: start: 20160203
  16. SOLIFENACIN [Concomitant]
     Active Substance: SOLIFENACIN
     Dosage: 10 MG, QD
     Dates: start: 20160203
  17. DALTEPARINE SODIQUE [Concomitant]
     Dosage: 0.2 ML, QD
     Dates: start: 20160204

REACTIONS (5)
  - Mobility decreased [Unknown]
  - Sepsis [Unknown]
  - Groin pain [Unknown]
  - Pneumonia [Unknown]
  - Renal impairment [Unknown]

NARRATIVE: CASE EVENT DATE: 20160215
